FAERS Safety Report 23494849 (Version 1)
Quarter: 2024Q1

REPORT INFORMATION
  Report Type: Spontaneous
  Country: CA (occurrence: None)
  Receive Date: 20240207
  Receipt Date: 20240207
  Transmission Date: 20240410
  Serious: Yes (Death)
  Sender: FDA-Public Use
  Company Number: 2024A028136

PATIENT
  Age: 80 Year
  Sex: Male
  Weight: 90 kg

DRUGS (3)
  1. CALQUENCE [Suspect]
     Active Substance: ACALABRUTINIB
     Route: 048
  2. FAMOTIDINE [Concomitant]
     Active Substance: FAMOTIDINE
  3. ROSUVASTATIN [Concomitant]
     Active Substance: ROSUVASTATIN

REACTIONS (9)
  - Acute respiratory failure [Fatal]
  - Asthenia [Fatal]
  - CSF protein increased [Fatal]
  - Headache [Fatal]
  - Malaise [Fatal]
  - Pleocytosis [Fatal]
  - Spinal cord infarction [Fatal]
  - Weight bearing difficulty [Fatal]
  - Intensive care [Fatal]
